FAERS Safety Report 12771824 (Version 1)
Quarter: 2016Q3

REPORT INFORMATION
  Report Type: Spontaneous
  Country: US (occurrence: US)
  Receive Date: 20160922
  Receipt Date: 20160922
  Transmission Date: 20161109
  Serious: Yes (Other)
  Sender: FDA-Public Use
  Company Number: US-BAYER-2016-182768

PATIENT
  Age: 53 Year
  Sex: Female

DRUGS (1)
  1. BETASERON [Suspect]
     Active Substance: INTERFERON BETA-1B
     Dosage: 0.3 MG, QOD
     Route: 058

REACTIONS (5)
  - Product use issue [None]
  - Vomiting [None]
  - Pruritus [None]
  - Hepatic cirrhosis [None]
  - Nausea [None]

NARRATIVE: CASE EVENT DATE: 2016
